FAERS Safety Report 5280322-5 (Version None)
Quarter: 2007Q1

REPORT INFORMATION
  Report Type: 
  Country: None (occurrence: None)
  Receive Date: 20070329
  Receipt Date: 20070323
  Transmission Date: 20070707
  Serious: Yes (Hospitalization, Other)
  Sender: FDA-Public Use
  Company Number: FR-ELI_LILLY_AND_COMPANY-FR200703005614

PATIENT
  Age: 52 Year
  Sex: Male

DRUGS (6)
  1. ZYPREXA [Suspect]
     Indication: BIPOLAR DISORDER
     Route: 048
  2. ZYPREXA [Suspect]
     Indication: BIPOLAR DISORDER
     Dosage: 40 MG, DAILY (1/D)
     Route: 048
     Dates: start: 20070321, end: 20070326
  3. ZYPREXA [Suspect]
     Dosage: 40 MG, DAILY (1/D)
     Route: 048
     Dates: start: 20070301
  4. DEPAKOTE [Concomitant]
     Indication: BIPOLAR DISORDER
     Dosage: 3 G, DAILY (1/D)
     Route: 048
     Dates: start: 20070321, end: 20070326
  5. DEPAKOTE [Concomitant]
     Dosage: 3 G, DAILY (1/D)
     Route: 048
     Dates: start: 20070301
  6. LOXAPINE [Concomitant]
     Indication: BIPOLAR DISORDER
     Route: 048
     Dates: start: 20070321, end: 20070324

REACTIONS (4)
  - MANIA [None]
  - PNEUMONIA [None]
  - PRESCRIBED OVERDOSE [None]
  - TACHYARRHYTHMIA [None]
